FAERS Safety Report 18512999 (Version 4)
Quarter: 2021Q1

REPORT INFORMATION
  Report Type: Spontaneous
  Country: US (occurrence: US)
  Receive Date: 20201117
  Receipt Date: 20210323
  Transmission Date: 20210419
  Serious: Yes (Other)
  Sender: FDA-Public Use
  Company Number: US-PFIZER INC-2020155605

PATIENT
  Age: 89 Year
  Sex: Male

DRUGS (1)
  1. VYNDAMAX [Suspect]
     Active Substance: TAFAMIDIS
     Indication: AMYLOIDOSIS
     Dosage: 61 MG, UNK

REACTIONS (7)
  - Cardiomyopathy [Not Recovered/Not Resolved]
  - Hip fracture [Not Recovered/Not Resolved]
  - Fracture malunion [Not Recovered/Not Resolved]
  - Hypoacusis [Unknown]
  - Off label use [Unknown]
  - Visual impairment [Unknown]
  - Anaemia [Not Recovered/Not Resolved]

NARRATIVE: CASE EVENT DATE: 20200808
